FAERS Safety Report 7723851-4 (Version None)
Quarter: 2011Q3

REPORT INFORMATION
  Report Type: 
  Country: None (occurrence: None)
  Receive Date: 20110901
  Receipt Date: 20110826
  Transmission Date: 20111222
  Serious: Yes (Other)
  Sender: FDA-Public Use
  Company Number: US-PFIZER INC-2011179993

PATIENT
  Sex: Female
  Weight: 56.236 kg

DRUGS (2)
  1. CALCIUM [Concomitant]
     Dosage: UNK
  2. FLAGYL [Suspect]
     Indication: BACTERIAL INFECTION
     Dosage: UNK
     Route: 048

REACTIONS (4)
  - DECREASED APPETITE [None]
  - WEIGHT DECREASED [None]
  - DYSGEUSIA [None]
  - MALAISE [None]
